FAERS Safety Report 13521721 (Version 1)
Quarter: 2017Q2

REPORT INFORMATION
  Report Type: Spontaneous
  Country: US (occurrence: US)
  Receive Date: 20170507
  Receipt Date: 20170507
  Transmission Date: 20170830
  Serious: No
  Sender: FDA-Public Use
  Company Number: None

PATIENT
  Age: 48 Year
  Sex: Male
  Weight: 121.5 kg

DRUGS (3)
  1. PREVIDENT [Suspect]
     Active Substance: SODIUM FLUORIDE
     Indication: SENSITIVITY OF TEETH
     Dosage: ON TEETH AFTER BRUSHING?
     Dates: start: 20170427, end: 20170507
  2. TRAZODONE [Concomitant]
     Active Substance: TRAZODONE HYDROCHLORIDE
  3. DULOXETINE. [Concomitant]
     Active Substance: DULOXETINE

REACTIONS (1)
  - Fatigue [None]

NARRATIVE: CASE EVENT DATE: 20170502
